FAERS Safety Report 15007992 (Version 3)
Quarter: 2018Q4

REPORT INFORMATION
  Report Type: Spontaneous
  Country: SE (occurrence: SE)
  Receive Date: 20180613
  Receipt Date: 20181112
  Transmission Date: 20190204
  Serious: Yes (Other)
  Sender: FDA-Public Use
  Company Number: SE-MYLANLABS-2018M1038926

PATIENT
  Age: 54 Year
  Sex: Female

DRUGS (8)
  1. ENALAPRIL [Interacting]
     Active Substance: ENALAPRIL
     Indication: PRODUCT USED FOR UNKNOWN INDICATION
     Dosage: UNK
     Route: 065
  2. CIPROFLOXACIN. [Interacting]
     Active Substance: CIPROFLOXACIN
     Indication: PRODUCT USED FOR UNKNOWN INDICATION
     Dosage: UNK
     Route: 065
  3. CEFTRIAXONE. [Suspect]
     Active Substance: CEFTRIAXONE
     Indication: DIABETIC FOOT
     Dosage: UNK
     Route: 051
  4. TELAVANCIN [Suspect]
     Active Substance: TELAVANCIN
     Indication: OSTEOMYELITIS
     Dosage: UNK
     Route: 042
  5. AMOXICILLIN/CLAVULANIC ACID [Suspect]
     Active Substance: AMOXICILLIN\CLAVULANIC ACID
     Indication: PRODUCT USED FOR UNKNOWN INDICATION
     Dosage: UNK
     Route: 065
  6. ALLOPURINOL. [Suspect]
     Active Substance: ALLOPURINOL
     Indication: PRODUCT USED FOR UNKNOWN INDICATION
     Dosage: UNK
     Route: 065
  7. METFORMIN [Suspect]
     Active Substance: METFORMIN HYDROCHLORIDE
     Indication: PRODUCT USED FOR UNKNOWN INDICATION
     Dosage: UNK
     Route: 065
  8. CEFEPIME [Suspect]
     Active Substance: CEFEPIME HYDROCHLORIDE
     Indication: PRODUCT USED FOR UNKNOWN INDICATION
     Dosage: UNK
     Route: 065

REACTIONS (10)
  - Drug interaction [Unknown]
  - Osteomyelitis [Unknown]
  - Cellulitis [Unknown]
  - Tubulointerstitial nephritis [Unknown]
  - Sepsis [Unknown]
  - Hypertensive heart disease [Unknown]
  - Klebsiella infection [Unknown]
  - Acute kidney injury [Recovered/Resolved]
  - Pneumonia [Unknown]
  - Diarrhoea [Unknown]
